FAERS Safety Report 19383180 (Version 2)
Quarter: 2022Q3

REPORT INFORMATION
  Report Type: Spontaneous
  Country: FR (occurrence: FR)
  Receive Date: 20210607
  Receipt Date: 20220714
  Transmission Date: 20221027
  Serious: Yes (Other)
  Sender: FDA-Public Use
  Company Number: FR-GSKCCFEMEA-CASE-01207891_AE-44293

PATIENT

DRUGS (2)
  1. ADVIL [Suspect]
     Active Substance: IBUPROFEN
     Indication: Pharyngitis
     Dosage: 1 DF, BID
     Route: 048
     Dates: start: 20210402, end: 20210404
  2. AERIUS (DESLORATADINE) [Suspect]
     Active Substance: DESLORATADINE
     Indication: Product used for unknown indication

REACTIONS (6)
  - Joint swelling [Recovered/Resolved]
  - Gait inability [Recovered/Resolved]
  - Hypersensitivity [Recovered/Resolved]
  - Urticaria [Recovering/Resolving]
  - Oedema peripheral [Unknown]
  - Skin plaque [Unknown]

NARRATIVE: CASE EVENT DATE: 20210404
